FAERS Safety Report 7820536-0 (Version None)
Quarter: 2011Q4

REPORT INFORMATION
  Report Type: 
  Country: None (occurrence: None)
  Receive Date: 20111018
  Receipt Date: 20111011
  Transmission Date: 20120403
  Serious: Yes (Other)
  Sender: FDA-Public Use
  Company Number: PHEH2009US07546

PATIENT
  Sex: Female

DRUGS (22)
  1. LEVOTHYROXINE SODIUM [Concomitant]
  2. ATENOLOL [Concomitant]
  3. AMITRIPTYLINE HCL [Concomitant]
     Dosage: 10 MG, QHS
     Route: 048
  4. ZOFRAN [Concomitant]
  5. PERCOCET [Concomitant]
  6. EFFEXOR [Concomitant]
  7. LIPITOR [Suspect]
  8. VICODIN [Concomitant]
  9. ABRAXANE [Concomitant]
  10. ARIMIDEX [Concomitant]
     Indication: BREAST CANCER
  11. ALEVE                              /00256202/ [Concomitant]
  12. DECADRON [Concomitant]
  13. SIMVASTATIN [Concomitant]
     Dosage: 20 MG, UNK
  14. ZOMETA [Suspect]
     Indication: METASTASES TO BONE
  15. ZITHROMAX [Concomitant]
     Dosage: 250 MG, QD
  16. ATIVAN [Concomitant]
  17. ZOMETA [Suspect]
     Indication: BREAST CANCER
     Dosage: 4 MG, QMO
     Dates: end: 20080101
  18. VITAMIN D [Concomitant]
  19. MEDROL [Concomitant]
     Dosage: 4 MG, QD
     Route: 048
  20. TYLENOL-500 [Concomitant]
  21. PRILOSEC [Concomitant]
     Dosage: 20 MG, QD
  22. ZITHROMAX [Concomitant]

REACTIONS (56)
  - INJURY [None]
  - ANXIETY [None]
  - HOT FLUSH [None]
  - SPINAL OSTEOARTHRITIS [None]
  - EAR PAIN [None]
  - SWELLING FACE [None]
  - OSTEOPOROSIS [None]
  - ARTHRALGIA [None]
  - DEPRESSION [None]
  - NAIL INFECTION [None]
  - PARONYCHIA [None]
  - FATIGUE [None]
  - LYMPHADENOPATHY [None]
  - UPPER RESPIRATORY TRACT INFECTION [None]
  - PRODUCTIVE COUGH [None]
  - CELLULITIS [None]
  - PERIODONTAL DISEASE [None]
  - ABDOMINAL DISCOMFORT [None]
  - DEMYELINATION [None]
  - RHINORRHOEA [None]
  - HYPERLIPIDAEMIA [None]
  - NEOPLASM MALIGNANT [None]
  - ADRENAL MASS [None]
  - GLIOSIS [None]
  - ISCHAEMIA [None]
  - ACUTE SINUSITIS [None]
  - ASTHMA [None]
  - WHEEZING [None]
  - EXPOSED BONE IN JAW [None]
  - PAIN IN JAW [None]
  - INTERVERTEBRAL DISC DEGENERATION [None]
  - ANHEDONIA [None]
  - OSTEOARTHRITIS [None]
  - BONE CYST [None]
  - HEPATIC STEATOSIS [None]
  - METASTASES TO SPINE [None]
  - METASTASES TO PELVIS [None]
  - OROPHARYNGEAL PAIN [None]
  - OSTEOMYELITIS [None]
  - NEOPLASM PROGRESSION [None]
  - METASTASES TO LIVER [None]
  - TEMPOROMANDIBULAR JOINT SYNDROME [None]
  - BACK PAIN [None]
  - MEMORY IMPAIRMENT [None]
  - OSTEONECROSIS OF JAW [None]
  - PAIN [None]
  - BONE PAIN [None]
  - LOOSE TOOTH [None]
  - SWELLING [None]
  - TENDONITIS [None]
  - BRONCHITIS [None]
  - DISABILITY [None]
  - TOOTHACHE [None]
  - HYPOAESTHESIA [None]
  - DIVERTICULUM [None]
  - CHRONIC OBSTRUCTIVE PULMONARY DISEASE [None]
